FAERS Safety Report 24159898 (Version 1)
Quarter: 2024Q3

REPORT INFORMATION
  Report Type: Spontaneous
  Country: US (occurrence: US)
  Receive Date: 20240731
  Receipt Date: 20240731
  Transmission Date: 20241017
  Serious: No
  Sender: SANOFI AVENTIS
  Company Number: US-SA-SAC20240729000990

PATIENT
  Age: 32 Year
  Sex: Male

DRUGS (10)
  1. DUPIXENT [Suspect]
     Active Substance: DUPILUMAB
     Indication: Dermatitis atopic
     Dosage: 300 MG, QOW
     Route: 058
  2. LEVOTHYROXINE [Concomitant]
     Active Substance: LEVOTHYROXINE\LEVOTHYROXINE SODIUM
     Dates: start: 20240212
  3. MOMETASONE [Concomitant]
     Active Substance: MOMETASONE
     Dates: start: 20240212
  4. CETIRIZINE [Concomitant]
     Active Substance: CETIRIZINE HYDROCHLORIDE
     Dates: start: 20240212
  5. ELIDEL [Concomitant]
     Active Substance: PIMECROLIMUS
     Dates: start: 20240212
  6. PIMECROLIMUS [Concomitant]
     Active Substance: PIMECROLIMUS
     Dates: start: 20240212
  7. ALBUTEROL SULFATE [Concomitant]
     Active Substance: ALBUTEROL SULFATE
     Dates: start: 20240212
  8. DICLOFENAC SODIUM [Concomitant]
     Active Substance: DICLOFENAC\DICLOFENAC SODIUM
     Dates: start: 20240212
  9. BUSPIRONE [Concomitant]
     Active Substance: BUSPIRONE HYDROCHLORIDE
     Dates: start: 20240212
  10. FLUTICASONE [Concomitant]
     Active Substance: FLUTICASONE
     Route: 045
     Dates: start: 20240212

REACTIONS (2)
  - Hypoaesthesia [Unknown]
  - Dry eye [Unknown]
